FAERS Safety Report 10081045 (Version 1)
Quarter: 2014Q2

REPORT INFORMATION
  Report Type: Spontaneous
  Country: US (occurrence: US)
  Receive Date: 20140416
  Receipt Date: 20140416
  Transmission Date: 20141212
  Serious: No
  Sender: FDA-Public Use
  Company Number: US-PFIZER INC-2014100572

PATIENT
  Age: 56 Year
  Sex: Female
  Weight: 48.07 kg

DRUGS (1)
  1. PROTONIX [Suspect]
     Dosage: 40 MG, DAILY
     Route: 048
     Dates: start: 2008

REACTIONS (1)
  - Arthralgia [Recovered/Resolved]
